FAERS Safety Report 19931139 (Version 4)
Quarter: 2022Q2

REPORT INFORMATION
  Report Type: Report from Study
  Country: JP (occurrence: JP)
  Receive Date: 20211007
  Receipt Date: 20220413
  Transmission Date: 20220721
  Serious: Yes (Other)
  Sender: FDA-Public Use
  Company Number: JP-TAKEDA-2021TJP098148

PATIENT
  Age: 66 Year
  Sex: Male
  Weight: 51 kg

DRUGS (27)
  1. LEUPLIN [Suspect]
     Active Substance: LEUPROLIDE ACETATE
     Indication: Bulbospinal muscular atrophy congenital
     Dosage: 11.25 MILLIGRAM, Q3MONTHS
     Route: 058
     Dates: start: 20180208
  2. METHYLCOBALAMIN [Concomitant]
     Active Substance: METHYLCOBALAMIN
     Indication: Product used for unknown indication
     Dosage: 1500 MICROGRAM
     Route: 065
     Dates: start: 20180208
  3. EURODIN [Concomitant]
     Indication: Insomnia
     Dosage: 2 MILLIGRAM
     Route: 065
  4. CLARITIN [Concomitant]
     Active Substance: LORATADINE
     Indication: Rhinitis allergic
     Dosage: 10 MILLIGRAM
     Route: 065
  5. CARBOCYSTEINE [Concomitant]
     Active Substance: CARBOCYSTEINE
     Indication: Product used for unknown indication
     Dosage: 1500 MILLIGRAM
     Route: 065
     Dates: end: 20181112
  6. CARBOCYSTEINE [Concomitant]
     Active Substance: CARBOCYSTEINE
     Dosage: 250 MILLIGRAM
     Route: 065
     Dates: start: 20191008
  7. FEBUXOSTAT [Concomitant]
     Active Substance: FEBUXOSTAT
     Indication: Hyperuricaemia
     Dosage: 10 MILLIGRAM
     Route: 065
     Dates: end: 20190619
  8. LINAGLIPTIN [Concomitant]
     Active Substance: LINAGLIPTIN
     Indication: Diabetes mellitus
     Dosage: 5 MILLIGRAM
     Route: 065
  9. MITIGLINIDE [Concomitant]
     Active Substance: MITIGLINIDE
     Indication: Diabetes mellitus
     Dosage: 15 MILLIGRAM
     Route: 065
     Dates: end: 20210908
  10. BETHANECHOL CHLORIDE [Concomitant]
     Active Substance: BETHANECHOL CHLORIDE
     Indication: Dysuria
     Dosage: 0.6 GRAM
     Route: 065
  11. KETOPROFEN [Concomitant]
     Active Substance: KETOPROFEN
     Indication: Bulbospinal muscular atrophy congenital
     Dosage: 30 MILLIGRAM
     Route: 065
     Dates: start: 20180320
  12. INDOMETHACIN [Concomitant]
     Active Substance: INDOMETHACIN
     Indication: Bulbospinal muscular atrophy congenital
     Dosage: 50 GRAM
     Route: 065
     Dates: start: 20180320
  13. AZUNOL [Concomitant]
     Indication: Product used for unknown indication
     Dosage: 5 MILLILITER
     Route: 065
     Dates: start: 20180320
  14. LOXOPROFEN SODIUM [Concomitant]
     Active Substance: LOXOPROFEN SODIUM
     Indication: Bulbospinal muscular atrophy congenital
     Dosage: 60 MILLIGRAM
     Route: 065
     Dates: start: 20180320
  15. LOXOPROFEN SODIUM [Concomitant]
     Active Substance: LOXOPROFEN SODIUM
     Indication: Pain
  16. TEPRENONE [Concomitant]
     Active Substance: TEPRENONE
     Indication: Pain
     Dosage: 50 MILLIGRAM
     Route: 065
     Dates: start: 20180320
  17. KENALOG [Concomitant]
     Active Substance: TRIAMCINOLONE ACETONIDE
     Indication: Product used for unknown indication
     Dosage: 5 GRAM
     Route: 065
     Dates: start: 20180731, end: 20181112
  18. ORTEXER [Concomitant]
     Indication: Product used for unknown indication
     Dosage: 5 GRAM
     Route: 065
     Dates: start: 20181113
  19. HARNAL [Concomitant]
     Active Substance: TAMSULOSIN HYDROCHLORIDE
     Indication: Dysuria
     Dosage: 0.2 MILLIGRAM
     Route: 065
     Dates: start: 20180226, end: 20180527
  20. HARNAL [Concomitant]
     Active Substance: TAMSULOSIN HYDROCHLORIDE
     Indication: Benign prostatic hyperplasia
  21. INSULIN GLARGINE [Concomitant]
     Active Substance: INSULIN GLARGINE
     Indication: Diabetes mellitus
     Dosage: 18 INTERNATIONAL UNIT, QD
     Route: 065
  22. VIDARABINE [Concomitant]
     Active Substance: VIDARABINE
     Indication: Bulbospinal muscular atrophy congenital
     Dosage: 30 MILLIGRAM
     Route: 065
     Dates: start: 20180222, end: 20180425
  23. PIRENOXINE [Concomitant]
     Active Substance: PIRENOXINE
     Indication: Cataract
     Dosage: UNK UNK, TID
     Route: 047
     Dates: start: 20180925, end: 20200722
  24. PIRENOXINE [Concomitant]
     Active Substance: PIRENOXINE
     Indication: Product used for unknown indication
     Dosage: UNK, TID
     Route: 047
     Dates: start: 20200728
  25. GLUFAST OD [Concomitant]
     Indication: Diabetes mellitus
     Dosage: 10 MILLIGRAM
     Route: 065
     Dates: start: 20210909
  26. CALONAL [Concomitant]
     Active Substance: ACETAMINOPHEN
     Indication: Product used for unknown indication
     Dosage: 500 MILLIGRAM
     Route: 065
     Dates: start: 20210608
  27. BENOXINATE HYDROCHLORIDE [Concomitant]
     Active Substance: BENOXINATE HYDROCHLORIDE
     Indication: Product used for unknown indication
     Dosage: UNK
     Route: 047
     Dates: start: 20211116

REACTIONS (3)
  - Diabetes mellitus [Recovering/Resolving]
  - Lacrimation increased [Recovering/Resolving]
  - Pharyngitis [Recovering/Resolving]

NARRATIVE: CASE EVENT DATE: 20181227
